FAERS Safety Report 18764763 (Version 2)
Quarter: 2021Q1

REPORT INFORMATION
  Report Type: Spontaneous
  Country: CN (occurrence: CN)
  Receive Date: 20210120
  Receipt Date: 20210205
  Transmission Date: 20210419
  Serious: Yes (Other)
  Sender: FDA-Public Use
  Company Number: CN-ALLERGAN-2103122US

PATIENT
  Sex: Female

DRUGS (3)
  1. HYALURONIC ACID [Suspect]
     Active Substance: HYALURONIC ACID
     Indication: DERMAL FILLER INJECTION
     Dosage: UNK, SINGLE
     Dates: start: 201703, end: 201703
  2. BOTOX [Suspect]
     Active Substance: ONABOTULINUMTOXINA
     Indication: PRODUCT USED FOR UNKNOWN INDICATION
     Dosage: UNK, SINGLE
     Dates: start: 201703, end: 201703
  3. ARTECOLL [DEVICE] [Suspect]
     Active Substance: DEVICE
     Indication: DERMAL FILLER INJECTION
     Dosage: UNK, SINGLE
     Dates: start: 201703, end: 201703

REACTIONS (4)
  - Musculoskeletal stiffness [Unknown]
  - Feeding disorder [Unknown]
  - Botulism [Unknown]
  - Facial paresis [Unknown]

NARRATIVE: CASE EVENT DATE: 201703
